FAERS Safety Report 12927646 (Version 1)
Quarter: 2016Q4

REPORT INFORMATION
  Report Type: Spontaneous
  Country: DK (occurrence: DK)
  Receive Date: 20161109
  Receipt Date: 20161109
  Transmission Date: 20170207
  Serious: Yes (Life-Threatening, Hospitalization, Other)
  Sender: FDA-Public Use
  Company Number: DK-MYLANLABS-2016M1047825

PATIENT

DRUGS (2)
  1. FENTANYL. [Suspect]
     Active Substance: FENTANYL
     Route: 065
  2. FENTANYL. [Suspect]
     Active Substance: FENTANYL
     Indication: PRODUCT USED FOR UNKNOWN INDICATION
     Dosage: TWO FENTANYL PATCHES AT 75 MICROG/HR
     Route: 048

REACTIONS (6)
  - Incorrect route of drug administration [Recovered/Resolved]
  - Overdose [Recovered/Resolved]
  - Respiratory rate decreased [Recovered/Resolved]
  - Intentional product misuse [Recovered/Resolved]
  - Loss of consciousness [Recovered/Resolved]
  - Tonic convulsion [Recovered/Resolved]
